FAERS Safety Report 18351847 (Version 2)
Quarter: 2020Q4

REPORT INFORMATION
  Report Type: Spontaneous
  Country: US (occurrence: US)
  Receive Date: 20201006
  Receipt Date: 20201008
  Transmission Date: 20210114
  Serious: Yes (Disabling, Other)
  Sender: FDA-Public Use
  Company Number: US-PFIZER INC-2020381228

PATIENT
  Age: 83 Year
  Sex: Male
  Weight: 95.25 kg

DRUGS (1)
  1. AMLODIPINE BESILATE [Suspect]
     Active Substance: AMLODIPINE BESYLATE
     Indication: RENAL DISORDER
     Dosage: 10 MG
     Dates: start: 202009, end: 2020

REACTIONS (8)
  - Drug hypersensitivity [Unknown]
  - Wound [Unknown]
  - Condition aggravated [Not Recovered/Not Resolved]
  - Gait disturbance [Unknown]
  - Peripheral swelling [Not Recovered/Not Resolved]
  - Erythema [Not Recovered/Not Resolved]
  - Muscle swelling [Unknown]
  - Bacterial infection [Unknown]

NARRATIVE: CASE EVENT DATE: 2020
